FAERS Safety Report 23738831 (Version 1)
Quarter: 2024Q2

REPORT INFORMATION
  Report Type: Spontaneous
  Country: US (occurrence: US)
  Receive Date: 20240413
  Receipt Date: 20240413
  Transmission Date: 20240717
  Serious: No
  Sender: FDA-Public Use
  Company Number: US-SA-SAC20240404000296

PATIENT
  Age: 14 Year
  Sex: Female

DRUGS (1)
  1. DUPIXENT [Suspect]
     Active Substance: DUPILUMAB
     Indication: Eczema
     Dosage: DOSE OR AMOUNT : 200MG FREQUENCY : EVERY 14 DAYS
     Route: 058
     Dates: start: 202308

REACTIONS (2)
  - Eczema [Unknown]
  - Therapeutic response shortened [Unknown]
